FAERS Safety Report 5485709-3 (Version None)
Quarter: 2007Q4

REPORT INFORMATION
  Report Type: 
  Country: None (occurrence: None)
  Receive Date: 20071011
  Receipt Date: 20071011
  Transmission Date: 20080405
  Serious: Yes (Hospitalization)
  Sender: FDA-Public Use
  Company Number: None

PATIENT
  Age: 78 Year
  Sex: Female
  Weight: 53.9 kg

DRUGS (1)
  1. INVANZ [Suspect]
     Indication: PELVIC ABSCESS
     Dosage: 1 GRAM EVERY 24 HOURS  IV
     Route: 042
     Dates: start: 20070917, end: 20070926

REACTIONS (5)
  - CONFUSIONAL STATE [None]
  - CONVULSION [None]
  - ELECTROENCEPHALOGRAM ABNORMAL [None]
  - EXCORIATION [None]
  - TONGUE DISORDER [None]
